FAERS Safety Report 18756839 (Version 1)
Quarter: 2021Q1

REPORT INFORMATION
  Report Type: Spontaneous
  Country: US (occurrence: US)
  Receive Date: 20210119
  Receipt Date: 20210119
  Transmission Date: 20210419
  Serious: No
  Sender: FDA-Public Use
  Company Number: US-PFIZER INC-2021028426

PATIENT
  Age: 68 Year
  Sex: Female

DRUGS (1)
  1. NORVASC [Suspect]
     Active Substance: AMLODIPINE BESYLATE
     Indication: BLOOD PRESSURE MEASUREMENT
     Dosage: UNK

REACTIONS (5)
  - Tinnitus [Unknown]
  - Malaise [Unknown]
  - Back pain [Unknown]
  - Blood pressure fluctuation [Unknown]
  - Weight fluctuation [Unknown]
